FAERS Safety Report 4371233-8 (Version None)
Quarter: 2004Q2

REPORT INFORMATION
  Report Type: 
  Country: None (occurrence: None)
  Receive Date: 20040604
  Receipt Date: 20040525
  Transmission Date: 20050107
  Serious: Yes (Other)
  Sender: FDA-Public Use
  Company Number: PHBS2004CA06889

PATIENT
  Sex: Male

DRUGS (4)
  1. LOPRESSOR [Suspect]
     Indication: HYPERTENSION
     Route: 048
     Dates: start: 20020501
  2. LITHIUM CARBONATE [Concomitant]
     Route: 065
  3. ANAESTHETICS [Concomitant]
     Route: 065
  4. NICOTINE [Concomitant]
     Route: 062

REACTIONS (2)
  - OEDEMA MOUTH [None]
  - SWOLLEN TONGUE [None]
